FAERS Safety Report 5160256-7 (Version None)
Quarter: 2006Q4

REPORT INFORMATION
  Report Type: 
  Country: None (occurrence: None)
  Receive Date: 20061129
  Receipt Date: 20061127
  Transmission Date: 20070319
  Serious: Yes (Hospitalization)
  Sender: FDA-Public Use
  Company Number: US-GLAXOSMITHKLINE-A0628693A

PATIENT
  Age: 51 Year
  Sex: Male

DRUGS (3)
  1. LAMICTAL [Suspect]
     Indication: DRUG USE FOR UNKNOWN INDICATION
     Route: 048
     Dates: start: 20060101, end: 20060101
  2. ATIVAN [Concomitant]
  3. SEROQUEL [Concomitant]

REACTIONS (8)
  - ADVERSE DRUG REACTION [None]
  - ANOREXIA [None]
  - DEFORMITY [None]
  - DYSGEUSIA [None]
  - RASH ERYTHEMATOUS [None]
  - STEVENS-JOHNSON SYNDROME [None]
  - THROAT TIGHTNESS [None]
  - WEIGHT DECREASED [None]
